FAERS Safety Report 8817180 (Version 1)
Quarter: 2012Q4

REPORT INFORMATION
  Report Type: Spontaneous
  Country: US (occurrence: None)
  Receive Date: 20121003
  Receipt Date: 20121003
  Transmission Date: 20130627
  Serious: No
  Sender: FDA-Public Use
  Company Number: None

PATIENT
  Age: 60 Year
  Sex: Male
  Weight: 81.8 kg

DRUGS (5)
  1. ZOLPIDEM [Suspect]
     Indication: INSOMNIA
     Dosage: 5mg QHS  PRN PO
     Route: 048
     Dates: start: 20120824, end: 20120826
  2. CARISOPRODOL [Suspect]
     Indication: MUSCLE SPASM
     Dosage: 350mg Q6H PO
     Route: 048
     Dates: start: 20120824, end: 20120826
  3. HYDROCODONE/ACETAMINOPHEN [Concomitant]
  4. LORAZEPAM [Concomitant]
  5. MORPHINE PCA [Concomitant]

REACTIONS (2)
  - Flatulence [None]
  - Oxygen saturation decreased [None]
